FAERS Safety Report 9302970 (Version 2)
Quarter: 2013Q3

REPORT INFORMATION
  Report Type: Spontaneous
  Country: CN (occurrence: CN)
  Receive Date: 20130522
  Receipt Date: 20130701
  Transmission Date: 20140515
  Serious: Yes (Other)
  Sender: FDA-Public Use
  Company Number: CN-BRISTOL-MYERS SQUIBB COMPANY-18923524

PATIENT
  Age: 61 Year
  Sex: Female

DRUGS (2)
  1. GLUCOPHAGE [Suspect]
     Dosage: STRENGTH:5MG TABS?PATIENT TAKES HALF OF IT
  2. INSULIN [Concomitant]

REACTIONS (1)
  - Diabetic nephropathy [Unknown]
